FAERS Safety Report 5236463-1 (Version None)
Quarter: 2007Q1

REPORT INFORMATION
  Report Type: 
  Country: None (occurrence: None)
  Receive Date: 20070208
  Receipt Date: 20070126
  Transmission Date: 20070707
  Serious: Yes (Death)
  Sender: FDA-Public Use
  Company Number: 15598

PATIENT
  Age: 74 Year
  Sex: Female

DRUGS (2)
  1. CARBOPLATIN [Suspect]
     Indication: LUNG CANCER METASTATIC
     Dosage: 540 MG ONCE IV
     Route: 042
     Dates: start: 20061206, end: 20061206
  2. ETOPOSIDE [Suspect]
     Indication: LUNG CANCER METASTATIC
     Dosage: 120 MG DAILY IV
     Route: 042
     Dates: start: 20061206, end: 20061208

REACTIONS (3)
  - ATRIAL FLUTTER [None]
  - HYPOTENSION [None]
  - NEUTROPENIC SEPSIS [None]
